FAERS Safety Report 23870666 (Version 5)
Quarter: 2024Q3

REPORT INFORMATION
  Report Type: Spontaneous
  Country: US (occurrence: US)
  Receive Date: 20240518
  Receipt Date: 20240810
  Transmission Date: 20241016
  Serious: Yes (Hospitalization, Other)
  Sender: UNITED THERAPEUTICS
  Company Number: US-UNITED THERAPEUTICS-UNT-2024-010880

PATIENT
  Sex: Female

DRUGS (7)
  1. TYVASO [Suspect]
     Active Substance: TREPROSTINIL
     Indication: Pulmonary arterial hypertension
     Dosage: 18 ?G, QID
     Dates: start: 202404, end: 202404
  2. TYVASO [Suspect]
     Active Substance: TREPROSTINIL
     Dosage: 30 ?G, QID
     Dates: start: 202404, end: 202404
  3. TYVASO [Suspect]
     Active Substance: TREPROSTINIL
     Dosage: 24 ?G, QID
     Dates: start: 202405, end: 2024
  4. TYVASO [Suspect]
     Active Substance: TREPROSTINIL
     Dosage: 48 ?G, QID
     Dates: start: 2024, end: 2024
  5. TYVASO [Suspect]
     Active Substance: TREPROSTINIL
     Dosage: 72 ?G, QID
     Dates: start: 2024
  6. TYVASO [Suspect]
     Active Substance: TREPROSTINIL
     Dosage: UNK
  7. SILDENAFIL CITRATE [Concomitant]
     Active Substance: SILDENAFIL CITRATE
     Indication: Product used for unknown indication
     Dosage: UNK

REACTIONS (22)
  - COVID-19 [Unknown]
  - Dyspnoea at rest [Not Recovered/Not Resolved]
  - Autoimmune disorder [Unknown]
  - Oedema peripheral [Unknown]
  - Nausea [Unknown]
  - Pain in jaw [Unknown]
  - Headache [Unknown]
  - Arthralgia [Unknown]
  - Pain in extremity [Unknown]
  - Oropharyngeal pain [Unknown]
  - Oedema [Unknown]
  - Decreased appetite [Unknown]
  - Cough [Unknown]
  - Throat irritation [Unknown]
  - Vomiting [Unknown]
  - Diarrhoea [Unknown]
  - Lethargy [Unknown]
  - Retching [Unknown]
  - Productive cough [Unknown]
  - Dizziness [Unknown]
  - General physical health deterioration [Unknown]
  - Therapy non-responder [Unknown]

NARRATIVE: CASE EVENT DATE: 20240101
